FAERS Safety Report 15527141 (Version 3)
Quarter: 2018Q4

REPORT INFORMATION
  Report Type: Report from Study
  Country: CA (occurrence: CA)
  Receive Date: 20181018
  Receipt Date: 20181022
  Transmission Date: 20190205
  Serious: Yes (Hospitalization)
  Sender: FDA-Public Use
  Company Number: PHHY2018CA128306

PATIENT
  Age: 57 Year
  Sex: Male

DRUGS (4)
  1. ACITRETIN. [Concomitant]
     Active Substance: ACITRETIN
     Indication: PRODUCT USED FOR UNKNOWN INDICATION
     Route: 065
  2. COSENTYX [Suspect]
     Active Substance: SECUKINUMAB
     Indication: PSORIASIS
     Dosage: 300 MG, QMO
     Route: 058
     Dates: start: 20161007
  3. COSENTYX [Suspect]
     Active Substance: SECUKINUMAB
     Dosage: 300 MG, QMO
     Route: 058
     Dates: start: 20180904
  4. METHOTREXATE. [Suspect]
     Active Substance: METHOTREXATE
     Indication: PRODUCT USED FOR UNKNOWN INDICATION
     Route: 065

REACTIONS (8)
  - Pain in extremity [Unknown]
  - Intervertebral discitis [Unknown]
  - Back pain [Unknown]
  - Musculoskeletal pain [Unknown]
  - Cerebral cyst [Unknown]
  - Gait inability [Unknown]
  - Bacterial infection [Unknown]
  - Bacteraemia [Unknown]

NARRATIVE: CASE EVENT DATE: 20180920
